FAERS Safety Report 5412258-0 (Version None)
Quarter: 2007Q3

REPORT INFORMATION
  Report Type: 
  Country: None (occurrence: None)
  Receive Date: 20070713
  Receipt Date: 20070518
  Transmission Date: 20080115
  Serious: No
  Sender: FDA-Public Use
  Company Number: 2007SP001859

PATIENT
  Age: 75 Year
  Sex: Male
  Weight: 103.4201 kg

DRUGS (11)
  1. LUNESTA [Suspect]
     Indication: INSOMNIA
     Dosage: 1 MG;HS;ORAL  2 MG;HS;ORAL  3 MG;HS;ORAL
     Route: 048
     Dates: start: 20070514, end: 20070515
  2. LUNESTA [Suspect]
     Indication: INSOMNIA
     Dosage: 1 MG;HS;ORAL  2 MG;HS;ORAL  3 MG;HS;ORAL
     Route: 048
     Dates: start: 20070516, end: 20070516
  3. LUNESTA [Suspect]
     Indication: INSOMNIA
     Dosage: 1 MG;HS;ORAL  2 MG;HS;ORAL  3 MG;HS;ORAL
     Route: 048
     Dates: start: 20070517
  4. LUNESTA [Suspect]
  5. GLIPIZIDE [Concomitant]
  6. DAMAMET [Concomitant]
  7. LISINOPRIL [Concomitant]
  8. EFFEXOR [Concomitant]
  9. MIRTAZAPINE [Concomitant]
  10. METOPROLOL SUCCINATE [Concomitant]
  11. TEMAZEPAM [Concomitant]

REACTIONS (1)
  - INSOMNIA [None]
